FAERS Safety Report 8661300 (Version 2)
Quarter: 2013Q2

REPORT INFORMATION
  Report Type: Report from Study
  Country: MX (occurrence: MX)
  Receive Date: 20120712
  Receipt Date: 20130506
  Transmission Date: 20140414
  Serious: Yes (Death, Other)
  Sender: FDA-Public Use
  Company Number: PHHY2012MX059201

PATIENT
  Age: 61 Year
  Sex: Female

DRUGS (2)
  1. EXFORGE [Suspect]
     Indication: HYPERTENSION
     Dosage: 1 DF (160 MG VALS/10MG OF AMLO) ONCE A DAY
     Dates: start: 200910
  2. HYDROCHLOROTHIAZIDE [Concomitant]
     Indication: HYPERTENSION
     Dosage: 1 DF, QD
     Dates: start: 201004

REACTIONS (3)
  - Death [Fatal]
  - Pulmonary thrombosis [Unknown]
  - Intracardiac thrombus [Unknown]
